FAERS Safety Report 4905345-4 (Version None)
Quarter: 2006Q1

REPORT INFORMATION
  Report Type: 
  Country: None (occurrence: None)
  Receive Date: 20060203
  Receipt Date: 20060120
  Transmission Date: 20060701
  Serious: Yes (Hospitalization)
  Sender: FDA-Public Use
  Company Number: 221352

PATIENT
  Age: 39 Year
  Sex: Female
  Weight: 102.9 kg

DRUGS (15)
  1. BEVACIZUMAB (BEVACIZUMAB) PWDR + SOLVENT , INFUSION SOLN, 100 MG [Suspect]
     Indication: OVARIAN CANCER
     Dosage: 515 Q2W, INTRAVENOUS
     Route: 042
     Dates: start: 20050725, end: 20051220
  2. IRINOTECAN HCL [Suspect]
     Indication: OVARIAN CANCER
     Dosage: 251
     Dates: end: 20051220
  3. FLUOROURACIL [Suspect]
     Indication: OVARIAN CANCER
     Dosage: 4853
     Dates: end: 20051220
  4. LEUCOVORIN CALCIUM [Suspect]
     Indication: OVARIAN CANCER
     Dosage: 836
     Dates: end: 20051220
  5. ASPIRIN [Concomitant]
  6. ATIVAN [Concomitant]
  7. ASPIRIN [Concomitant]
  8. LIPITOR [Concomitant]
  9. LOPRESSOR [Concomitant]
  10. PLAVIX [Concomitant]
  11. SENNA (SENNA) [Concomitant]
  12. STOOL SOFTENER (UNK INGREDIENTS) (STOOL SOFTENER NOS) [Concomitant]
  13. ACETAMINOPHEN [Concomitant]
  14. ZANTAC [Concomitant]
  15. ZETIA [Concomitant]

REACTIONS (13)
  - ABDOMINAL PAIN [None]
  - ABDOMINAL PAIN LOWER [None]
  - ANAL FISTULA [None]
  - BODY TEMPERATURE INCREASED [None]
  - DECREASED APPETITE [None]
  - DIARRHOEA [None]
  - HEART RATE INCREASED [None]
  - NAUSEA [None]
  - PAIN [None]
  - RESPIRATORY RATE INCREASED [None]
  - TUMOUR NECROSIS [None]
  - VAGINAL HAEMORRHAGE [None]
  - VIRAL INFECTION [None]
